FAERS Safety Report 22079664 (Version 1)
Quarter: 2023Q1

REPORT INFORMATION
  Report Type: Spontaneous
  Country: US (occurrence: US)
  Receive Date: 20230309
  Receipt Date: 20230309
  Transmission Date: 20230418
  Serious: Yes (Other)
  Sender: FDA-Public Use
  Company Number: US-009507513-2303USA002281

PATIENT
  Age: 52 Year
  Sex: Female

DRUGS (3)
  1. NOXAFIL [Interacting]
     Active Substance: POSACONAZOLE
     Indication: Antifungal prophylaxis
     Route: 048
  2. PONATINIB [Interacting]
     Active Substance: PONATINIB
     Indication: Philadelphia positive acute lymphocytic leukaemia
     Dosage: 30 MILLIGRAM (EQUIVALENT DOSE: }45MG)
  3. BLINATUMOMAB [Concomitant]
     Active Substance: BLINATUMOMAB

REACTIONS (2)
  - Deep vein thrombosis [Unknown]
  - Potentiating drug interaction [Unknown]
